FAERS Safety Report 24937938 (Version 1)
Quarter: 2025Q1

REPORT INFORMATION
  Report Type: Spontaneous
  Country: FR (occurrence: FR)
  Receive Date: 20250206
  Receipt Date: 20250206
  Transmission Date: 20250409
  Serious: Yes (Death, Life-Threatening, Other)
  Sender: AMGEN
  Company Number: FR-AMGEN-FRASP2025021073

PATIENT

DRUGS (1)
  1. BEVACIZUMAB [Suspect]
     Active Substance: BEVACIZUMAB
     Indication: Ovarian cancer
     Route: 065

REACTIONS (13)
  - Death [Fatal]
  - Post procedural complication [Unknown]
  - Surgical procedure repeated [Unknown]
  - Toxicity to various agents [Unknown]
  - Agranulocytosis [Unknown]
  - Bone marrow failure [Unknown]
  - Polyneuropathy [Unknown]
  - Anaemia [Unknown]
  - Febrile neutropenia [Unknown]
  - Thrombocytopenia [Unknown]
  - Neuropathy peripheral [Unknown]
  - Adverse drug reaction [Unknown]
  - Skin disorder [Unknown]
